FAERS Safety Report 9964424 (Version 1)
Quarter: 2014Q1

REPORT INFORMATION
  Report Type: Spontaneous
  Country: US (occurrence: US)
  Receive Date: 20140305
  Receipt Date: 20140305
  Transmission Date: 20141002
  Serious: Yes (Other)
  Sender: FDA-Public Use
  Company Number: US-PFIZER INC-2014053620

PATIENT
  Age: 66 Year
  Sex: Female

DRUGS (2)
  1. GUAIFENESIN [Suspect]
     Dosage: UNK
  2. QUINAMM [Suspect]
     Dosage: UNK

REACTIONS (3)
  - Anaphylactic shock [Unknown]
  - Drug hypersensitivity [Unknown]
  - Urticaria [Unknown]
